FAERS Safety Report 5142142-1 (Version None)
Quarter: 2006Q4

REPORT INFORMATION
  Report Type: 
  Country: None (occurrence: None)
  Receive Date: 20061027
  Receipt Date: 20061018
  Transmission Date: 20070319
  Serious: Yes (Hospitalization, Other)
  Sender: FDA-Public Use
  Company Number: 2006129005

PATIENT
  Age: 58 Year
  Sex: Female
  Weight: 54.4316 kg

DRUGS (7)
  1. LIPITOR [Suspect]
     Indication: BLOOD CHOLESTEROL INCREASED
     Dosage: 40 MG (40 MG, 1 IN 1 D
     Dates: start: 19970101
  2. LIPITOR [Suspect]
     Indication: BLOOD TRIGLYCERIDES INCREASED
     Dosage: 40 MG (40 MG, 1 IN 1 D
     Dates: start: 19970101
  3. CLONIDINE [Concomitant]
  4. PREMARIN [Concomitant]
  5. VITAMIN D [Concomitant]
  6. VITAMIN B              (VITAMIN B) [Concomitant]
  7. CALCIUM (CALCIUM) [Concomitant]

REACTIONS (12)
  - BLOOD GLUCOSE INCREASED [None]
  - BLOOD TRIGLYCERIDES INCREASED [None]
  - BODY HEIGHT DECREASED [None]
  - BONE DISORDER [None]
  - DIABETES MELLITUS [None]
  - DIARRHOEA [None]
  - DISCOMFORT [None]
  - GASTROINTESTINAL DISORDER [None]
  - HERNIA [None]
  - INFLUENZA [None]
  - PANCREATITIS [None]
  - SPINAL DISORDER [None]
